FAERS Safety Report 8619545-3 (Version None)
Quarter: 2012Q3

REPORT INFORMATION
  Report Type: 
  Country: None (occurrence: None)
  Receive Date: 20120824
  Receipt Date: 20120503
  Transmission Date: 20120928
  Serious: No
  Sender: FDA-Public Use
  Company Number: US-ASTRAZENECA-2012SE22991

PATIENT
  Age: 58 Year
  Sex: Female

DRUGS (5)
  1. SYMBICORT [Suspect]
     Dosage: 160 MCG/4.5 MCG, TWO PUFFS BID
     Route: 055
  2. AMLODIPINE [Concomitant]
     Route: 048
  3. VENTOLIN [Concomitant]
     Dosage: TWO PUFFS, AS REQUIRED
     Route: 055
  4. ATACAND [Concomitant]
     Route: 048
  5. SYMBICORT [Suspect]
     Dosage: 160 MCG/4.5 MCG, TWO PUFFS BID
     Route: 055
     Dates: start: 20110922

REACTIONS (2)
  - DYSPNOEA [None]
  - DRUG INEFFECTIVE [None]
